FAERS Safety Report 19902025 (Version 5)
Quarter: 2022Q1

REPORT INFORMATION
  Report Type: Spontaneous
  Country: JP (occurrence: JP)
  Receive Date: 20210929
  Receipt Date: 20220315
  Transmission Date: 20220423
  Serious: Yes (Hospitalization, Other)
  Sender: FDA-Public Use
  Company Number: JP-BRISTOL-MYERS SQUIBB COMPANY-BMS-2021-098374

PATIENT
  Age: 70 Year
  Sex: Male
  Weight: 61.45 kg

DRUGS (4)
  1. YERVOY [Suspect]
     Active Substance: IPILIMUMAB
     Indication: Non-small cell lung cancer recurrent
     Dosage: 60 MILLIGRAM, Q6WK
     Route: 041
     Dates: start: 20210225
  2. OPDIVO [Suspect]
     Active Substance: NIVOLUMAB
     Indication: Non-small cell lung cancer recurrent
     Dosage: 360 MILLIGRAM, Q3WK
     Route: 041
     Dates: start: 20210225
  3. CARBOPLATIN [Suspect]
     Active Substance: CARBOPLATIN
     Indication: Non-small cell lung cancer recurrent
     Dosage: AUC6 (540), Q3W
     Route: 041
     Dates: start: 20210225, end: 20210225
  4. ALIMTA [Suspect]
     Active Substance: PEMETREXED DISODIUM
     Indication: Non-small cell lung cancer recurrent
     Dosage: 500 MG/M2(830), Q3W
     Route: 041
     Dates: start: 20210225, end: 20210324

REACTIONS (14)
  - Pyrexia [Recovered/Resolved]
  - Oropharyngeal pain [Unknown]
  - Malaise [Unknown]
  - Blood pressure decreased [Unknown]
  - Febrile neutropenia [Recovered/Resolved]
  - Sjogren^s syndrome [Unknown]
  - Hypothyroidism [Recovering/Resolving]
  - Staphylococcal bacteraemia [Unknown]
  - Vomiting [Unknown]
  - Rash [Recovering/Resolving]
  - Anaemia [Recovering/Resolving]
  - Dry eye [Not Recovered/Not Resolved]
  - Arthralgia [Unknown]
  - Nausea [Recovered/Resolved]

NARRATIVE: CASE EVENT DATE: 20210304
